FAERS Safety Report 21640880 (Version 2)
Quarter: 2023Q1

REPORT INFORMATION
  Report Type: Spontaneous
  Country: US (occurrence: US)
  Receive Date: 20221125
  Receipt Date: 20230113
  Transmission Date: 20230417
  Serious: No
  Sender: FDA-Public Use
  Company Number: US-LUPIN PHARMACEUTICALS INC.-2022-13686

PATIENT

DRUGS (8)
  1. DICLOFENAC [Suspect]
     Active Substance: DICLOFENAC
     Indication: Pain
     Dosage: UNK
     Route: 061
  2. MELOXICAM [Suspect]
     Active Substance: MELOXICAM
     Indication: Pain
     Dosage: UNK
     Route: 065
  3. OXYCODONE [Suspect]
     Active Substance: OXYCODONE
     Indication: Pain
     Dosage: 10 MILLIGRAM
     Route: 065
  4. GABAPENTIN [Suspect]
     Active Substance: GABAPENTIN
     Indication: Pain
     Dosage: UNK
     Route: 065
  5. BUPRENORPHINE [Suspect]
     Active Substance: BUPRENORPHINE
     Indication: Pain
     Dosage: 100 MILLIGRAM, XR BUPRENORPHINE
     Route: 065
  6. ACETAMINOPHEN [Suspect]
     Active Substance: ACETAMINOPHEN
     Indication: Pain
     Dosage: UNK
     Route: 065
  7. CYCLOBENZAPRINE [Suspect]
     Active Substance: CYCLOBENZAPRINE
     Indication: Pain
     Dosage: UNK
     Route: 065
  8. HYDROMORPHONE [Concomitant]
     Active Substance: HYDROMORPHONE
     Indication: Pain
     Dosage: 8 MILLIGRAM, TID
     Route: 065

REACTIONS (1)
  - Treatment failure [Unknown]
